FAERS Safety Report 8574805-X (Version None)
Quarter: 2012Q3

REPORT INFORMATION
  Report Type: 
  Country: None (occurrence: None)
  Receive Date: 20120807
  Receipt Date: 20120703
  Transmission Date: 20120928
  Serious: No
  Sender: FDA-Public Use
  Company Number: US-009507513-1207USA001526

PATIENT

DRUGS (7)
  1. IBUPROFEN (ADVIL) [Concomitant]
  2. REBETOL [Suspect]
     Route: 048
  3. CYANOCOBALAMIN [Concomitant]
  4. PEG-INTRON [Suspect]
     Route: 058
  5. LORAZEPAM [Concomitant]
  6. ACIPHEX [Concomitant]
  7. VICTRELIS [Suspect]
     Dosage: 800 MG, TID
     Route: 048
     Dates: start: 20120629

REACTIONS (1)
  - DYSGEUSIA [None]
